FAERS Safety Report 5470023-2 (Version None)
Quarter: 2007Q3

REPORT INFORMATION
  Report Type: 
  Country: None (occurrence: None)
  Receive Date: 20070927
  Receipt Date: 20070924
  Transmission Date: 20080115
  Serious: Yes (Other)
  Sender: FDA-Public Use
  Company Number: US-ROXANE LABORATORIES, INC-2007-DE-05714GD

PATIENT
  Age: 20 Year
  Sex: Male

DRUGS (3)
  1. SERTRALINE [Suspect]
  2. ROBITUSSIN MAXIMUM STRENGTH COUGH SYRUP [Suspect]
     Route: 048
  3. CORICIDIN [Suspect]
     Route: 048

REACTIONS (8)
  - COORDINATION ABNORMAL [None]
  - DRUG ABUSER [None]
  - DYSARTHRIA [None]
  - FALL [None]
  - IMPAIRED DRIVING ABILITY [None]
  - LETHARGY [None]
  - MYDRIASIS [None]
  - NYSTAGMUS [None]
